FAERS Safety Report 15786386 (Version 2)
Quarter: 2019Q1

REPORT INFORMATION
  Report Type: Report from Study
  Country: US (occurrence: US)
  Receive Date: 20190103
  Receipt Date: 20190215
  Transmission Date: 20190417
  Serious: Yes (Hospitalization, Other)
  Sender: FDA-Public Use
  Company Number: US-JNJFOC-20181129390

PATIENT
  Age: 76 Year
  Sex: Male

DRUGS (4)
  1. IMBRUVICA [Suspect]
     Active Substance: IBRUTINIB
     Indication: CHRONIC LYMPHOCYTIC LEUKAEMIA
     Route: 048
  2. IMBRUVICA [Suspect]
     Active Substance: IBRUTINIB
     Indication: CHRONIC LYMPHOCYTIC LEUKAEMIA
     Route: 048
     Dates: start: 201807, end: 20181030
  3. IMBRUVICA [Suspect]
     Active Substance: IBRUTINIB
     Indication: CHRONIC LYMPHOCYTIC LEUKAEMIA
     Route: 048
     Dates: start: 201811
  4. IMBRUVICA [Suspect]
     Active Substance: IBRUTINIB
     Indication: CHRONIC LYMPHOCYTIC LEUKAEMIA
     Route: 048

REACTIONS (7)
  - Post procedural haematuria [Recovering/Resolving]
  - Pain [Unknown]
  - Urinary retention [Recovering/Resolving]
  - Benign prostatic hyperplasia [Recovered/Resolved]
  - Disease progression [Unknown]
  - Urinary bladder haemorrhage [Unknown]
  - Genital herpes [Unknown]

NARRATIVE: CASE EVENT DATE: 201810
